FAERS Safety Report 9069303 (Version 1)
Quarter: 2013Q1

REPORT INFORMATION
  Report Type: Spontaneous
  Country: DE (occurrence: DE)
  Receive Date: 20130215
  Receipt Date: 20130215
  Transmission Date: 20140127
  Serious: Yes (Hospitalization)
  Sender: FDA-Public Use
  Company Number: DE-MYLANLABS-2013S1002502

PATIENT
  Age: 5 Decade
  Sex: Male

DRUGS (12)
  1. ZOLMITRIPTAN [Suspect]
     Indication: MIGRAINE
     Dosage: FOR USE DURING ACUTE MIGRAINE ATTACKS
     Route: 065
     Dates: start: 2000, end: 2008
  2. ZOLMITRIPTAN [Suspect]
     Indication: INTENTIONAL DRUG MISUSE
     Dosage: FOR USE DURING ACUTE MIGRAINE ATTACKS
     Route: 065
     Dates: start: 2000, end: 2008
  3. ZOLMITRIPTAN [Suspect]
     Indication: MIGRAINE
     Dosage: HIGH DOSES ON DAILY BASIS
     Route: 065
     Dates: start: 2000, end: 2008
  4. ZOLMITRIPTAN [Suspect]
     Indication: INTENTIONAL DRUG MISUSE
     Dosage: HIGH DOSES ON DAILY BASIS
     Route: 065
     Dates: start: 2000, end: 2008
  5. SUMATRIPTAN [Suspect]
     Indication: MIGRAINE
     Dosage: FOR USE DURING ACUTE MIGRAINE ATTACKS
     Route: 065
     Dates: start: 2000, end: 2008
  6. SUMATRIPTAN [Suspect]
     Indication: INTENTIONAL DRUG MISUSE
     Dosage: FOR USE DURING ACUTE MIGRAINE ATTACKS
     Route: 065
     Dates: start: 2000, end: 2008
  7. SUMATRIPTAN [Suspect]
     Indication: MIGRAINE
     Dosage: HIGH DOSES ON DAILY BASIS
     Route: 065
     Dates: start: 2000, end: 2008
  8. SUMATRIPTAN [Suspect]
     Indication: INTENTIONAL DRUG MISUSE
     Dosage: HIGH DOSES ON DAILY BASIS
     Route: 065
     Dates: start: 2000, end: 2008
  9. FROVATRIPTAN [Suspect]
     Indication: MIGRAINE
     Dosage: FOR USE DURING ACUTE MIGRAINE ATTACKS
     Route: 065
     Dates: start: 2000, end: 2008
  10. FROVATRIPTAN [Suspect]
     Indication: INTENTIONAL DRUG MISUSE
     Dosage: FOR USE DURING ACUTE MIGRAINE ATTACKS
     Route: 065
     Dates: start: 2000, end: 2008
  11. FROVATRIPTAN [Suspect]
     Indication: MIGRAINE
     Dosage: HIGH DOSES ON DAILY BASIS
     Route: 065
     Dates: start: 2000, end: 2008
  12. FROVATRIPTAN [Suspect]
     Indication: INTENTIONAL DRUG MISUSE
     Dosage: HIGH DOSES ON DAILY BASIS
     Route: 065
     Dates: start: 2000, end: 2008

REACTIONS (3)
  - Major depression [Recovered/Resolved]
  - Intentional drug misuse [Recovered/Resolved]
  - Withdrawal syndrome [Recovered/Resolved]
